FAERS Safety Report 12873352 (Version 1)
Quarter: 2016Q4

REPORT INFORMATION
  Report Type: Spontaneous
  Country: US (occurrence: US)
  Receive Date: 20161021
  Receipt Date: 20161021
  Transmission Date: 20170207
  Serious: No
  Sender: FDA-Public Use
  Company Number: US-ALLERGAN-1520834US

PATIENT
  Age: 54 Year
  Sex: Female
  Weight: 64.4 kg

DRUGS (1)
  1. FML [Suspect]
     Active Substance: FLUOROMETHOLONE
     Indication: EYE INFECTION
     Dosage: UNK, QHS
     Route: 047
     Dates: start: 20150220, end: 20150227

REACTIONS (3)
  - Ocular discomfort [Recovered/Resolved]
  - Eye irritation [Recovered/Resolved]
  - Dry eye [Recovering/Resolving]

NARRATIVE: CASE EVENT DATE: 2015
